FAERS Safety Report 13557508 (Version 1)
Quarter: 2017Q2

REPORT INFORMATION
  Report Type: Spontaneous
  Country: US (occurrence: US)
  Receive Date: 20170518
  Receipt Date: 20170518
  Transmission Date: 20170830
  Serious: No
  Sender: FDA-Public Use
  Company Number: PHEH2017US014696

PATIENT
  Sex: Female

DRUGS (1)
  1. LETROZOLE. [Suspect]
     Active Substance: LETROZOLE
     Indication: PRODUCT USED FOR UNKNOWN INDICATION
     Route: 065

REACTIONS (7)
  - Oral pain [Unknown]
  - Viral upper respiratory tract infection [Unknown]
  - Cough [Unknown]
  - Alopecia [Unknown]
  - Sleep disorder [Unknown]
  - Epistaxis [Unknown]
  - Constipation [Unknown]
